FAERS Safety Report 9569771 (Version 2)
Quarter: 2013Q3

REPORT INFORMATION
  Report Type: Spontaneous
  Country: US (occurrence: US)
  Receive Date: 20130930
  Receipt Date: 20130930
  Transmission Date: 20140515
  Serious: No
  Sender: FDA-Public Use
  Company Number: US-AMGEN-USASP2013062545

PATIENT
  Age: 40 Year
  Sex: Male
  Weight: 75.74 kg

DRUGS (4)
  1. ENBREL [Suspect]
     Indication: PSORIATIC ARTHROPATHY
     Dosage: 25 MG, 2 TIMES/WK
     Route: 058
     Dates: start: 200408, end: 201301
  2. MULTIVITAMIN                       /00097801/ [Concomitant]
     Dosage: UNK
  3. OMEGA 3                            /01333901/ [Concomitant]
     Dosage: 340 MG, UNK
  4. VITAMIN D                          /00107901/ [Concomitant]
     Dosage: 400 UNIT, UNK

REACTIONS (2)
  - Hypertension [Unknown]
  - Neutropenia [Recovered/Resolved]
